FAERS Safety Report 8312338-6 (Version None)
Quarter: 2012Q2

REPORT INFORMATION
  Report Type: 
  Country: None (occurrence: None)
  Receive Date: 20120425
  Receipt Date: 20120417
  Transmission Date: 20120825
  Serious: Yes (Other)
  Sender: FDA-Public Use
  Company Number: JP-B.I. PHARMACEUTICALS,INC./RIDGEFIELD-2012-EU-02122GD

PATIENT

DRUGS (1)
  1. DABIGATRAN [Suspect]

REACTIONS (2)
  - EMBOLISM [None]
  - EMBOLIC CEREBRAL INFARCTION [None]
